FAERS Safety Report 12995348 (Version 2)
Quarter: 2016Q4

REPORT INFORMATION
  Report Type: Spontaneous
  Country: US (occurrence: US)
  Receive Date: 20161202
  Receipt Date: 20161212
  Transmission Date: 20170207
  Serious: No
  Sender: FDA-Public Use
  Company Number: US-BIOMARINAP-US-2016-112015

PATIENT
  Sex: Female
  Weight: 55.36 kg

DRUGS (6)
  1. SELEGILINE [Concomitant]
     Active Substance: SELEGILINE
     Indication: PRODUCT USED FOR UNKNOWN INDICATION
     Dosage: 6 MG, QD
     Route: 061
  2. KUVAN [Suspect]
     Active Substance: SAPROPTERIN DIHYDROCHLORIDE
     Indication: METABOLIC DISORDER
     Dosage: 500 MG, QD
     Route: 048
     Dates: start: 201512
  3. DOXEPIN [Concomitant]
     Active Substance: DOXEPIN
     Indication: PRODUCT USED FOR UNKNOWN INDICATION
     Dosage: 10 MG/ML, QD
     Route: 048
  4. FLONASE [Concomitant]
     Active Substance: FLUTICASONE PROPIONATE
     Indication: PRODUCT USED FOR UNKNOWN INDICATION
     Dosage: UNK, BID
     Route: 045
  5. ASTEPRO [Concomitant]
     Active Substance: AZELASTINE HYDROCHLORIDE
     Indication: PRODUCT USED FOR UNKNOWN INDICATION
     Dosage: UNK, QD
     Route: 045
  6. BACLOFEN. [Concomitant]
     Active Substance: BACLOFEN
     Indication: PRODUCT USED FOR UNKNOWN INDICATION
     Dosage: 5 MG, PRN
     Route: 048

REACTIONS (10)
  - Gastritis [Unknown]
  - Off label use [Unknown]
  - Throat irritation [Unknown]
  - Abdominal pain upper [Unknown]
  - Upper-airway cough syndrome [Unknown]
  - Upper respiratory tract infection [Unknown]
  - Laryngitis [Unknown]
  - Secretion discharge [Unknown]
  - Cough [Unknown]
  - Hyperhomocysteinaemia [Unknown]
